FAERS Safety Report 8093085 (Version 2)
Quarter: 2012Q4

REPORT INFORMATION
  Report Type: Report from Study
  Country: JP (occurrence: JP)
  Receive Date: 20110816
  Receipt Date: 20121101
  Transmission Date: 20130627
  Serious: Yes (Hospitalization)
  Sender: FDA-Public Use
  Company Number: PHHY2011JP70962

PATIENT
  Age: 69 Year
  Sex: Female
  Weight: 49 kg

DRUGS (8)
  1. VALSARTAN, AMLODIPINE [Suspect]
     Indication: HYPERTENSION
     Dosage: 1 DF, daily
     Route: 048
     Dates: start: 20110524, end: 201107
  2. VALSARTAN, AMLODIPINE [Suspect]
     Dosage: 1 DF, daily
     Route: 048
     Dates: start: 20110802
  3. GLACTIV [Concomitant]
     Dosage: 50 mg, UNK
     Route: 048
     Dates: start: 20101125
  4. AMARYL [Concomitant]
     Dosage: 1 mg, UNK
     Route: 048
     Dates: start: 20111114
  5. ERISPAN [Concomitant]
     Indication: HYPERTENSION
     Dosage: 0.5 mg, UNK
     Route: 048
     Dates: start: 20000217
  6. KELNAC [Concomitant]
     Dosage: 240 mg, UNK
     Route: 048
     Dates: start: 19970722
  7. CRESTOR [Concomitant]
     Dosage: 2.5 mg, UNK
     Route: 048
     Dates: start: 20110924
  8. GLIMEPIRIDE [Concomitant]
     Dosage: 1 mg, UNK
     Route: 048
     Dates: start: 20111115

REACTIONS (5)
  - Thalamus haemorrhage [Recovering/Resolving]
  - Hemiparesis [Unknown]
  - Hypoaesthesia [Not Recovered/Not Resolved]
  - Pain [Not Recovered/Not Resolved]
  - Blood pressure systolic increased [Unknown]
